FAERS Safety Report 21929474 (Version 1)
Quarter: 2023Q1

REPORT INFORMATION
  Report Type: Spontaneous
  Country: NL (occurrence: NL)
  Receive Date: 20230131
  Receipt Date: 20230131
  Transmission Date: 20230418
  Serious: Yes (Other)
  Sender: FDA-Public Use
  Company Number: NL-LRB-00861682

PATIENT
  Sex: Female
  Weight: 92 kg

DRUGS (1)
  1. LISINOPRIL [Suspect]
     Active Substance: LISINOPRIL
     Indication: Hypertension
     Dosage: 10 MILLIGRAM, ONCE A DAY
     Route: 065
     Dates: start: 20221229

REACTIONS (6)
  - Arrhythmia [Not Recovered/Not Resolved]
  - Renal injury [Unknown]
  - Pollakiuria [Recovering/Resolving]
  - Flank pain [Not Recovered/Not Resolved]
  - Palpitations [Recovering/Resolving]
  - Heart rate increased [Unknown]
